FAERS Safety Report 22593069 (Version 3)
Quarter: 2025Q3

REPORT INFORMATION
  Report Type: Report from Study
  Country: US (occurrence: US)
  Receive Date: 20230613
  Receipt Date: 20250717
  Transmission Date: 20251021
  Serious: Yes (Other)
  Sender: NOVARTIS
  Company Number: US-002147023-NVSC2023US130576

PATIENT
  Age: 59 Year
  Sex: Female

DRUGS (2)
  1. LEQVIO [Interacting]
     Active Substance: INCLISIRAN SODIUM
     Indication: Product used for unknown indication
     Route: 042
     Dates: start: 20230321
  2. LEQVIO [Interacting]
     Active Substance: INCLISIRAN SODIUM
     Route: 042
     Dates: end: 20230606

REACTIONS (5)
  - Liver injury [Not Recovered/Not Resolved]
  - Gamma-glutamyltransferase increased [Unknown]
  - Blood alkaline phosphatase increased [Unknown]
  - Lipoprotein increased [Unknown]
  - Low density lipoprotein increased [Unknown]

NARRATIVE: CASE EVENT DATE: 20230321
